FAERS Safety Report 5317331-3 (Version None)
Quarter: 2007Q2

REPORT INFORMATION
  Report Type: 
  Country: None (occurrence: None)
  Receive Date: 20070504
  Receipt Date: 20070425
  Transmission Date: 20071010
  Serious: Yes (Other)
  Sender: FDA-Public Use
  Company Number: BR-PFIZER INC-2007034113

PATIENT
  Sex: Female

DRUGS (1)
  1. DETRUSITOL LA [Suspect]
     Route: 048

REACTIONS (1)
  - THYROID DISORDER [None]
